FAERS Safety Report 16410964 (Version 17)
Quarter: 2025Q1

REPORT INFORMATION
  Report Type: Spontaneous
  Country: DE (occurrence: DE)
  Receive Date: 20190610
  Receipt Date: 20250305
  Transmission Date: 20250409
  Serious: Yes (Hospitalization, Other)
  Sender: Haleon PLC
  Company Number: DE-002147023-PHHY2019DE125763

PATIENT
  Age: 56 Year
  Sex: Female

DRUGS (66)
  1. DICLOFENAC [Suspect]
     Active Substance: DICLOFENAC
     Indication: Arthralgia
     Dosage: 100 MG, QD (RETARD)
     Route: 048
     Dates: start: 20190122
  2. DICLOFENAC [Suspect]
     Active Substance: DICLOFENAC
     Indication: Sacral pain
     Route: 054
  3. DICLOFENAC [Suspect]
     Active Substance: DICLOFENAC
     Indication: Back pain
     Dosage: UNK
     Route: 048
  4. DICLOFENAC [Suspect]
     Active Substance: DICLOFENAC
     Route: 054
  5. MAGNESIUM [Concomitant]
     Active Substance: MAGNESIUM
     Indication: Muscle spasms
     Dosage: 400 MG, QD (0-1-0)
     Route: 065
  6. PANTOPRAZOLE [Concomitant]
     Active Substance: PANTOPRAZOLE
     Indication: Product used for unknown indication
     Dosage: 40 MG, QD (1-0-0)
     Route: 048
  7. ASPIRIN [Concomitant]
     Active Substance: ASPIRIN
     Indication: Product used for unknown indication
     Dosage: 100 MG, QD
     Route: 048
  8. BISACODYL [Concomitant]
     Active Substance: BISACODYL
     Indication: Product used for unknown indication
     Route: 065
  9. BOTOX [Concomitant]
     Active Substance: ONABOTULINUMTOXINA
     Indication: Product used for unknown indication
     Route: 065
  10. CHOLECALCIFEROL [Concomitant]
     Active Substance: CHOLECALCIFEROL
     Indication: Vitamin D deficiency
     Dosage: 20000 IU, QD
     Route: 065
  11. OCREVUS [Suspect]
     Active Substance: OCRELIZUMAB
     Indication: Relapsing-remitting multiple sclerosis
     Route: 065
     Dates: end: 20210629
  12. OCREVUS [Suspect]
     Active Substance: OCRELIZUMAB
     Indication: Secondary progressive multiple sclerosis
     Route: 042
     Dates: start: 20180503, end: 20180503
  13. OCREVUS [Suspect]
     Active Substance: OCRELIZUMAB
     Route: 042
     Dates: start: 20181106
  14. OCREVUS [Suspect]
     Active Substance: OCRELIZUMAB
     Route: 042
     Dates: start: 20180517, end: 20180517
  15. OCREVUS [Suspect]
     Active Substance: OCRELIZUMAB
     Route: 042
     Dates: start: 20200609
  16. OCREVUS [Suspect]
     Active Substance: OCRELIZUMAB
     Route: 042
     Dates: start: 20201207
  17. OCREVUS [Suspect]
     Active Substance: OCRELIZUMAB
     Route: 042
     Dates: start: 20180517
  18. OCREVUS [Suspect]
     Active Substance: OCRELIZUMAB
     Route: 065
     Dates: end: 20210629
  19. OCREVUS [Suspect]
     Active Substance: OCRELIZUMAB
     Route: 042
     Dates: end: 20210629
  20. OCREVUS [Suspect]
     Active Substance: OCRELIZUMAB
     Route: 042
     Dates: start: 20230801
  21. OCREVUS [Suspect]
     Active Substance: OCRELIZUMAB
     Route: 042
  22. BUDESONIDE [Concomitant]
     Active Substance: BUDESONIDE
     Indication: Product used for unknown indication
     Dosage: 2 DF, BID (2 HUBS PER DAY)
     Route: 065
  23. BACLOFENUM [Concomitant]
     Indication: Muscle spasticity
     Route: 065
  24. BACLOFENUM [Concomitant]
     Route: 048
  25. BACLOFENUM [Concomitant]
     Dosage: 75 MG, QD
     Route: 065
  26. BACLOFENUM [Concomitant]
     Route: 065
  27. BACLOFENUM [Concomitant]
     Route: 048
  28. ACYCLOVIR [Concomitant]
     Active Substance: ACYCLOVIR
     Indication: Product used for unknown indication
     Dosage: UNK UNK, BID (1-0-1 FOR FOUR WEEKS)
     Route: 065
  29. ACYCLOVIR [Concomitant]
     Active Substance: ACYCLOVIR
     Dosage: UNK UNK, BID (1-0-1 FOR FOUR WEEKS)
     Route: 065
  30. CARBAMAZEPINE [Concomitant]
     Active Substance: CARBAMAZEPINE
     Indication: Product used for unknown indication
     Dosage: 400 MG, QD (1-0-0)
     Route: 048
  31. CARBAMAZEPINE [Concomitant]
     Active Substance: CARBAMAZEPINE
     Dosage: 400 MG, QD  (0-1-0)
     Route: 048
  32. CARBAMAZEPINE [Concomitant]
     Active Substance: CARBAMAZEPINE
     Dosage: 200 MG, BID (2-0-1)
     Route: 065
     Dates: start: 20190801
  33. AMITRIPTYLINE [Suspect]
     Active Substance: AMITRIPTYLINE
     Indication: Depression
     Dosage: 10 MG, QD
     Route: 065
  34. AMITRIPTYLINE [Suspect]
     Active Substance: AMITRIPTYLINE
     Dosage: 50 MG, QD
     Route: 065
  35. AMITRIPTYLINE [Suspect]
     Active Substance: AMITRIPTYLINE
     Dosage: 50 MG, QD
     Route: 065
  36. AMITRIPTYLINE [Suspect]
     Active Substance: AMITRIPTYLINE
     Dosage: 10 MG, QD(0-0-1)
     Route: 065
  37. AMITRIPTYLINE [Suspect]
     Active Substance: AMITRIPTYLINE
     Dosage: 10 MG, QD
     Route: 065
  38. AMITRIPTYLINE [Suspect]
     Active Substance: AMITRIPTYLINE
     Dosage: 50 MG, QD (0-0-1)
     Route: 065
  39. AMITRIPTYLINE [Suspect]
     Active Substance: AMITRIPTYLINE
     Dosage: 10 MG, QD
     Route: 065
  40. AMITRIPTYLINE [Suspect]
     Active Substance: AMITRIPTYLINE
     Dosage: 50 MG, QD (0-0-1)
     Route: 065
  41. AMITRIPTYLINE [Suspect]
     Active Substance: AMITRIPTYLINE
     Dosage: 50 MG, QD (0-0-1)
     Route: 065
  42. AMITRIPTYLINE [Suspect]
     Active Substance: AMITRIPTYLINE
     Dosage: 10 MG, QD (0-0-1)
     Route: 065
  43. BACLOFEN [Concomitant]
     Active Substance: BACLOFEN
     Indication: Muscle spasticity
     Route: 065
  44. BACLOFEN [Concomitant]
     Active Substance: BACLOFEN
     Route: 065
  45. BACLOFEN [Concomitant]
     Active Substance: BACLOFEN
     Dosage: 25 MG, QD
     Route: 065
  46. BACLOFEN [Concomitant]
     Active Substance: BACLOFEN
     Route: 065
  47. BACLOFEN [Concomitant]
     Active Substance: BACLOFEN
     Route: 065
  48. BACLOFEN [Concomitant]
     Active Substance: BACLOFEN
     Route: 048
  49. BACLOFEN [Concomitant]
     Active Substance: BACLOFEN
     Route: 065
  50. BACLOFEN [Concomitant]
     Active Substance: BACLOFEN
     Dosage: 75 MG, QD
     Route: 065
  51. BACLOFEN [Concomitant]
     Active Substance: BACLOFEN
     Route: 065
  52. BACLOFEN [Concomitant]
     Active Substance: BACLOFEN
     Route: 048
  53. BACLOFEN [Concomitant]
     Active Substance: BACLOFEN
     Route: 065
  54. BACLOFEN [Concomitant]
     Active Substance: BACLOFEN
     Route: 048
  55. BACLOFEN [Concomitant]
     Active Substance: BACLOFEN
     Route: 065
  56. BACLOFEN [Concomitant]
     Active Substance: BACLOFEN
     Dosage: 75 MG, QD
     Route: 065
  57. BACLOFEN [Concomitant]
     Active Substance: BACLOFEN
     Route: 048
  58. BACLOFEN [Concomitant]
     Active Substance: BACLOFEN
     Route: 065
  59. SELENIUM [Concomitant]
     Active Substance: SELENIUM
     Indication: Product used for unknown indication
     Dosage: UNK UNK, QD
     Route: 065
  60. RAMIPRIL [Concomitant]
     Active Substance: RAMIPRIL
     Indication: Hypertension
     Dosage: 2.5 MG, QD (1-0-0)
     Route: 065
  61. RAMIPRIL [Concomitant]
     Active Substance: RAMIPRIL
     Dosage: 10 MG, BID (1-0-1)
     Route: 065
  62. ZINC [Concomitant]
     Active Substance: ZINC
     Indication: Product used for unknown indication
     Route: 065
  63. BOTULINUM TOXIN TYPE A [Concomitant]
     Active Substance: BOTULINUM TOXIN TYPE A
     Indication: Product used for unknown indication
     Route: 065
  64. FOLIC ACID [Concomitant]
     Active Substance: FOLIC ACID
     Indication: Product used for unknown indication
     Dosage: 0.4 MG, QD
     Route: 065
  65. FOLIC ACID [Concomitant]
     Active Substance: FOLIC ACID
     Indication: Product used for unknown indication
     Dosage: 5 MG, QD
     Route: 065
  66. METHYLPREDNISOLONE [Concomitant]
     Active Substance: METHYLPREDNISOLONE
     Indication: Product used for unknown indication

REACTIONS (58)
  - Ear infection [Recovered/Resolved]
  - COVID-19 [Recovered/Resolved]
  - Muscular weakness [Recovered/Resolved]
  - Meniscus injury [Recovered/Resolved]
  - Oropharyngeal pain [Recovered/Resolved]
  - Memory impairment [Recovered/Resolved]
  - Mouth ulceration [Recovered/Resolved]
  - Urticaria [Recovered/Resolved]
  - Product administration error [Unknown]
  - Angina pectoris [Not Recovered/Not Resolved]
  - Cough [Recovered/Resolved]
  - Herpes virus infection [Recovered/Resolved]
  - Stomatitis [Recovered/Resolved]
  - Respiratory tract infection [Recovered/Resolved]
  - Dyspnoea [Recovering/Resolving]
  - Pyrexia [Recovered/Resolved]
  - Paraesthesia [Recovered/Resolved]
  - Insomnia [Recovered/Resolved]
  - Therapeutic product effect decreased [Recovered/Resolved]
  - Sacroiliitis [Recovered/Resolved]
  - Migraine [Recovered/Resolved]
  - Muscle spasticity [Not Recovered/Not Resolved]
  - Chondropathy [Not Recovered/Not Resolved]
  - Spinal stenosis [Not Recovered/Not Resolved]
  - Headache [Recovered/Resolved]
  - C-reactive protein increased [Recovering/Resolving]
  - Feeling abnormal [Not Recovered/Not Resolved]
  - Infection [Recovered/Resolved]
  - Pruritus [Recovered/Resolved]
  - Cholelithiasis [Recovered/Resolved]
  - Infrapatellar fat pad inflammation [Not Recovered/Not Resolved]
  - Infusion related reaction [Recovered/Resolved]
  - Chest discomfort [Recovering/Resolving]
  - Drug ineffective [Unknown]
  - Sensory disturbance [Recovered/Resolved]
  - Cystitis noninfective [Recovered/Resolved]
  - Genital herpes [Recovered/Resolved]
  - Abdominal pain upper [Recovered/Resolved]
  - Nausea [Recovered/Resolved]
  - Effusion [Not Recovered/Not Resolved]
  - Sleep disorder [Recovering/Resolving]
  - Osteoarthritis [Not Recovered/Not Resolved]
  - Skin laceration [Recovered/Resolved]
  - Back pain [Recovered/Resolved]
  - Nasopharyngitis [Not Recovered/Not Resolved]
  - Multiple sclerosis [Not Recovered/Not Resolved]
  - Neuralgia [Recovered/Resolved]
  - Fatigue [Recovered/Resolved]
  - Acquired diaphragmatic eventration [Not Recovered/Not Resolved]
  - Sacral pain [Recovering/Resolving]
  - Norovirus infection [Recovered/Resolved]
  - Irritable bowel syndrome [Recovered/Resolved]
  - Dizziness [Recovered/Resolved]
  - White blood cell count decreased [Not Recovered/Not Resolved]
  - Rash [Recovered/Resolved]
  - Gastroenteritis norovirus [Recovered/Resolved]
  - Terminal insomnia [Recovering/Resolving]
  - Dyspepsia [Not Recovered/Not Resolved]

NARRATIVE: CASE EVENT DATE: 20180503
